FAERS Safety Report 8181275-2 (Version None)
Quarter: 2012Q1

REPORT INFORMATION
  Report Type: 
  Country: None (occurrence: None)
  Receive Date: 20120126
  Receipt Date: 20111108
  Transmission Date: 20120608
  Serious: Yes (Hospitalization)
  Sender: FDA-Public Use
  Company Number: PHHY2011US38127

PATIENT
  Age: 14 Year
  Sex: Male

DRUGS (13)
  1. AFINITOR [Suspect]
     Indication: TUBEROUS SCLEROSIS
     Dosage: 10 MG, DAILY, ORAL 5 MG, QD 12.5 MG DAILY, ORAL, 20 MG, ONCE DAILY, ORAL
     Route: 048
     Dates: start: 20110330
  2. AFINITOR [Suspect]
     Indication: TUBEROUS SCLEROSIS
     Dosage: 10 MG, DAILY, ORAL 5 MG, QD 12.5 MG DAILY, ORAL, 20 MG, ONCE DAILY, ORAL
     Route: 048
     Dates: start: 20110407
  3. AFINITOR [Suspect]
     Indication: TUBEROUS SCLEROSIS
     Dosage: 10 MG, DAILY, ORAL 5 MG, QD 12.5 MG DAILY, ORAL, 20 MG, ONCE DAILY, ORAL
     Route: 048
     Dates: start: 20110330, end: 20111030
  4. SABRIL [Suspect]
  5. DIASTAT [Concomitant]
  6. CEFDINIR [Concomitant]
  7. TRILEPTAL [Suspect]
  8. CLINDAMYCIN [Concomitant]
  9. MIDAZOLAM [Concomitant]
  10. MELATONIN [Concomitant]
  11. LITHIUM CARBONATE [Concomitant]
  12. SAPHRIS [Suspect]
  13. VITAMIN D [Concomitant]

REACTIONS (8)
  - EMOTIONAL DISORDER [None]
  - NASOPHARYNGITIS [None]
  - WHITE BLOOD CELL COUNT INCREASED [None]
  - DECREASED APPETITE [None]
  - DRUG LEVEL BELOW THERAPEUTIC [None]
  - PYREXIA [None]
  - PNEUMONIA [None]
  - COUGH [None]
